FAERS Safety Report 9657911 (Version 1)
Quarter: 2013Q4

REPORT INFORMATION
  Report Type: Spontaneous
  Country: US (occurrence: None)
  Receive Date: 20131029
  Receipt Date: 20131029
  Transmission Date: 20140711
  Serious: Yes (Other)
  Sender: FDA-Public Use
  Company Number: CIP-2013-00200

PATIENT
  Sex: 0

DRUGS (3)
  1. CARBOPLATIN INJECTION DRY (CARBOPLATIN) [Suspect]
     Indication: BREAST CANCER METASTATIC
     Dosage: AREA UNDER THE CURVE 2 (DAYS 1,8 AND 15 OF 28 DAYS CYCLE)
  2. NAB-PACLITAXEL [Suspect]
     Indication: BREAST CANCER METASTATIC
     Dosage: 100MG/M2 DAYS 1,8 AND15 OF 28 DAY CYCLE
  3. BEVACIZUMAB (BEVACIZUMAB) [Suspect]
     Indication: BREAST CANCER METASTATIC
     Dosage: 10MG/KG, DAYS 1 AND 15 OF 28 DAY CYCLE

REACTIONS (2)
  - Thrombosis [None]
  - Disease complication [None]
